FAERS Safety Report 17597121 (Version 1)
Quarter: 2020Q1

REPORT INFORMATION
  Report Type: Spontaneous
  Country: US (occurrence: US)
  Receive Date: 20200330
  Receipt Date: 20200330
  Transmission Date: 20200409
  Serious: No
  Sender: FDA-Public Use
  Company Number: US-AUROBINDO-AUR-APL-2019-043225

PATIENT
  Sex: Male
  Weight: 54.4 kg

DRUGS (1)
  1. SERTRALINE HYDROCHLORIDE TABLETS 50MG [Suspect]
     Active Substance: SERTRALINE HYDROCHLORIDE
     Indication: PRODUCT USED FOR UNKNOWN INDICATION
     Dosage: 50 MILLIGRAM
     Route: 065

REACTIONS (5)
  - Diarrhoea [Unknown]
  - Hyperhidrosis [Unknown]
  - Insomnia [Unknown]
  - Ejaculation failure [Unknown]
  - Tremor [Unknown]
